FAERS Safety Report 5591660-0 (Version None)
Quarter: 2008Q1

REPORT INFORMATION
  Report Type: 
  Country: None (occurrence: None)
  Receive Date: 20080115
  Receipt Date: 20080102
  Transmission Date: 20080703
  Serious: Yes (Hospitalization, Other)
  Sender: FDA-Public Use
  Company Number: NL-ELI_LILLY_AND_COMPANY-NL200710002083

PATIENT
  Sex: Female

DRUGS (6)
  1. FORTEO [Suspect]
     Indication: OSTEOPOROSIS POSTMENOPAUSAL
     Dosage: 20 UG, UNKNOWN
     Route: 058
     Dates: start: 20070314, end: 20070101
  2. FORTEO [Suspect]
     Dosage: UNK, UNKNOWN
     Route: 058
     Dates: start: 20070917, end: 20070101
  3. COMBIVENT [Concomitant]
     Dosage: 1 D/F, 4/D
  4. SEREVENT [Concomitant]
     Dosage: 2 D/F, 2/D
  5. WATER [Concomitant]
     Dosage: 1/12, UNKNOWN
  6. CALCICHEW [Concomitant]
     Dosage: UNK, UNKNOWN
     Route: 065

REACTIONS (5)
  - ABSCESS [None]
  - AORTIC ANEURYSM [None]
  - DIVERTICULITIS [None]
  - HYPERCALCAEMIA [None]
  - HYPERKALAEMIA [None]
